FAERS Safety Report 16533666 (Version 1)
Quarter: 2019Q3

REPORT INFORMATION
  Report Type: Spontaneous
  Country: GB (occurrence: GB)
  Receive Date: 20190704
  Receipt Date: 20190704
  Transmission Date: 20191004
  Serious: Yes (Other)
  Sender: FDA-Public Use
  Company Number: GB-TEVA-2019-GB-1072694

PATIENT
  Age: 62 Year
  Sex: Female
  Weight: 44 kg

DRUGS (2)
  1. TRAZODONE [Concomitant]
     Active Substance: TRAZODONE HYDROCHLORIDE
     Dosage: AT NIGHT
     Dates: start: 20190429, end: 20190527
  2. AMOXICILLIN. [Suspect]
     Active Substance: AMOXICILLIN
     Indication: RESPIRATORY TRACT INFECTION
     Dates: start: 20190531

REACTIONS (5)
  - Rash [Recovered/Resolved]
  - Diarrhoea [Unknown]
  - Circulatory collapse [Unknown]
  - Presyncope [Unknown]
  - Erythema [Unknown]

NARRATIVE: CASE EVENT DATE: 20190606
